FAERS Safety Report 10232629 (Version 1)
Quarter: 2014Q2

REPORT INFORMATION
  Report Type: Spontaneous
  Country: GB (occurrence: GB)
  Receive Date: 20140612
  Receipt Date: 20140612
  Transmission Date: 20141212
  Serious: Yes (Life-Threatening, Hospitalization)
  Sender: FDA-Public Use
  Company Number: GB-PFIZER INC-2014156696

PATIENT
  Age: 21 Month
  Sex: Female
  Weight: 11 kg

DRUGS (4)
  1. IBUPROFEN [Suspect]
     Indication: PYREXIA
     Dosage: 50-100MG 3 TIMES DAILY
     Route: 048
     Dates: end: 2014
  2. IBUPROFEN [Suspect]
     Indication: DISCOMFORT
  3. MOVICOL [Concomitant]
     Dosage: UNK
  4. LACTULOSE [Concomitant]
     Dosage: UNK

REACTIONS (1)
  - Necrotising fasciitis [Recovered/Resolved with Sequelae]
